FAERS Safety Report 8112183-0 (Version None)
Quarter: 2012Q1

REPORT INFORMATION
  Report Type: 
  Country: None (occurrence: None)
  Receive Date: 20120131
  Receipt Date: 20120126
  Transmission Date: 20120608
  Serious: Yes (Other)
  Sender: FDA-Public Use
  Company Number: ADR-2012-00191

PATIENT
  Sex: Male

DRUGS (2)
  1. LIORESAL [Suspect]
     Indication: MUSCLE SPASTICITY
     Dosage: 750 MCG/DAY
     Route: 037
  2. LIORESAL [Suspect]
     Indication: CEREBRAL PALSY
     Dosage: 750 MCG/DAY
     Route: 037

REACTIONS (5)
  - DEVICE DISLOCATION [None]
  - SUTURE RUPTURE [None]
  - DEVICE RELATED INFECTION [None]
  - FALL [None]
  - INCISION SITE COMPLICATION [None]
